FAERS Safety Report 6758515-7 (Version None)
Quarter: 2010Q2

REPORT INFORMATION
  Report Type: 
  Country: None (occurrence: None)
  Receive Date: 20100607
  Receipt Date: 20100527
  Transmission Date: 20101027
  Serious: Yes (Other)
  Sender: FDA-Public Use
  Company Number: B0646098A

PATIENT
  Age: 55 Year
  Sex: Female

DRUGS (22)
  1. ZYRTEC [Suspect]
     Dosage: 10MG PER DAY
     Route: 048
     Dates: start: 20090101
  2. LORTAB [Suspect]
     Indication: DRUG USE FOR UNKNOWN INDICATION
     Route: 048
  3. GABAPENTIN [Suspect]
     Indication: DIABETIC NEUROPATHY
     Dosage: 2UNIT THREE TIMES PER DAY
     Route: 048
     Dates: start: 20040101
  4. VICODIN [Suspect]
     Route: 048
     Dates: start: 20060101
  5. ZANAFLEX [Suspect]
     Dosage: 2MG TWICE PER DAY
     Route: 048
     Dates: start: 20090101
  6. DIOVAN [Suspect]
     Dosage: 160MG PER DAY
     Route: 048
     Dates: start: 20020101
  7. BUPROPION HCL [Suspect]
     Indication: DEPRESSION
     Dosage: 300MG PER DAY
     Route: 048
  8. LOZOL [Suspect]
     Dosage: 1.25MG PER DAY
     Route: 048
     Dates: start: 20020101
  9. METFORMIN [Suspect]
     Dosage: 500MG PER DAY
     Route: 048
  10. SITAGLIPTIN PHOSPHATE [Suspect]
     Route: 048
  11. KLONOPIN [Suspect]
     Indication: ANXIETY
     Dosage: .5MG TWICE PER DAY
     Route: 048
  12. PRILOSEC [Suspect]
     Dosage: 20MG TWICE PER DAY
     Route: 048
  13. CARAFATE [Suspect]
     Dosage: 1G TWICE PER DAY
     Route: 048
  14. AGGRENOX [Suspect]
     Indication: ARTERIAL DISORDER
     Route: 048
     Dates: start: 20091201
  15. FLONASE [Suspect]
     Dosage: 50MCG TWICE PER DAY
     Route: 045
  16. FLOVENT [Suspect]
     Indication: ASTHMA
     Dosage: 110MCG TWICE PER DAY
     Route: 055
  17. VENTOLIN [Suspect]
     Indication: ASTHMA
     Route: 045
  18. IMITREX [Suspect]
     Indication: MIGRAINE
     Dosage: 100MG AS REQUIRED
     Route: 048
  19. NITROLINGUAL [Suspect]
     Indication: CHEST PAIN
     Dosage: .4MG AS REQUIRED
     Route: 050
  20. EPIPEN [Suspect]
     Route: 062
  21. SIMVASTATIN [Suspect]
     Indication: DRUG USE FOR UNKNOWN INDICATION
     Route: 048
  22. MULTI-VITAMIN [Suspect]
     Indication: DRUG USE FOR UNKNOWN INDICATION
     Route: 048

REACTIONS (2)
  - CARDIAC DISORDER [None]
  - MEMORY IMPAIRMENT [None]
